FAERS Safety Report 8618965-0 (Version None)
Quarter: 2012Q3

REPORT INFORMATION
  Report Type: 
  Country: None (occurrence: None)
  Receive Date: 20120810
  Receipt Date: 20120726
  Transmission Date: 20120928
  Serious: Yes (Other)
  Sender: FDA-Public Use
  Company Number: TPA2012A02775

PATIENT
  Age: 65 Year
  Sex: Male
  Weight: 113.3993 kg

DRUGS (12)
  1. ASPIRIN [Concomitant]
  2. ACTOS [Suspect]
     Indication: TYPE 2 DIABETES MELLITUS
     Dosage: 30 MG, 45 MG
     Dates: start: 20000301, end: 20020423
  3. ACTOS [Suspect]
     Indication: TYPE 2 DIABETES MELLITUS
     Dosage: 30 MG, 45 MG
     Dates: start: 20020423, end: 20020508
  4. PRILOSEC [Concomitant]
  5. NOVOLOG [Concomitant]
  6. LISINOPRIL [Concomitant]
  7. GLYBURIDE [Concomitant]
  8. METFFORMIN HYDROCHLORIDE [Concomitant]
  9. COREG [Concomitant]
  10. GLUCOPHAGE [Concomitant]
  11. LANTUS [Concomitant]
  12. METFFORMIN HYDROCHLORIDE [Concomitant]

REACTIONS (3)
  - BLADDER CANCER [None]
  - PROSTATE CANCER [None]
  - TRANSITIONAL CELL CARCINOMA [None]
